APPROVED DRUG PRODUCT: CORDARONE
Active Ingredient: AMIODARONE HYDROCHLORIDE
Strength: 200MG **Federal Register determination that product was not discontinued or withdrawn for safety or effectiveness reasons**
Dosage Form/Route: TABLET;ORAL
Application: N018972 | Product #001
Applicant: WYETH PHARMACEUTICALS LLC
Approved: Dec 24, 1985 | RLD: Yes | RS: No | Type: DISCN